FAERS Safety Report 4524184-X (Version None)
Quarter: 2004Q4

REPORT INFORMATION
  Report Type: 
  Country: None (occurrence: None)
  Receive Date: 20041119
  Receipt Date: 20040831
  Transmission Date: 20050328
  Serious: No
  Sender: FDA-Public Use
  Company Number: 208857

PATIENT
  Sex: Male

DRUGS (2)
  1. RAPTIVA [Suspect]
  2. VIAGRA [Concomitant]

REACTIONS (1)
  - PSORIASIS [None]
